FAERS Safety Report 25941911 (Version 2)
Quarter: 2025Q4

REPORT INFORMATION
  Report Type: Spontaneous
  Country: US (occurrence: None)
  Receive Date: 20251020
  Receipt Date: 20251030
  Transmission Date: 20260117
  Serious: Yes (Hospitalization, Other)
  Sender: UCB
  Company Number: US-UCBSA-2025065421

PATIENT
  Age: 76 Year

DRUGS (3)
  1. RYSTIGGO [Suspect]
     Active Substance: ROZANOLIXIZUMAB-NOLI
     Indication: Myasthenia gravis
     Dosage: 840 MILLIGRAM, WEEKLY (QW) FOR 6 WEEKS WITH 4 WEEKS OFF BETWEEN CYCLES
  2. RYSTIGGO [Suspect]
     Active Substance: ROZANOLIXIZUMAB-NOLI
     Dosage: 840 MILLIGRAM, WEEKLY (QW) FOR 6 WEEKS WITH 4 WEEKS OFF BETWEEN CYCLES
  3. EPINEPHRINE [Concomitant]
     Active Substance: EPINEPHRINE
     Indication: Product used for unknown indication
     Dosage: AUTOINJECTOR

REACTIONS (2)
  - Carotid endarterectomy [Unknown]
  - Gastrointestinal haemorrhage [Unknown]
